FAERS Safety Report 8866419 (Version 2)
Quarter: 2012Q4

REPORT INFORMATION
  Report Type: 
  Country: US (occurrence: US)
  Receive Date: 20121025
  Receipt Date: 20121119
  Transmission Date: 20130627
  Serious: Yes (Other)
  Sender: FDA-Public Use
  Company Number: US-ASTRAZENECA-2012SE79371

PATIENT
  Age: 61 Year
  Sex: Female

DRUGS (6)
  1. LISINOPRIL/HCTZ [Suspect]
     Dosage: 25/12.5, DAILY
     Route: 048
  2. CRESTOR [Suspect]
     Route: 048
  3. AMBIEN [Concomitant]
  4. ATENOLOL [Concomitant]
     Route: 048
  5. SERTRALINE [Concomitant]
  6. LIPOVITE [Concomitant]

REACTIONS (1)
  - Angioedema [Recovered/Resolved]
